FAERS Safety Report 5315037-8 (Version None)
Quarter: 2007Q2

REPORT INFORMATION
  Report Type: 
  Country: None (occurrence: None)
  Receive Date: 20070502
  Receipt Date: 20070418
  Transmission Date: 20071010
  Serious: Yes (Life-Threatening, Hospitalization)
  Sender: FDA-Public Use
  Company Number: JP-ROCHE-487618

PATIENT
  Age: 14 Year
  Sex: Male
  Weight: 40 kg

DRUGS (4)
  1. TAMIFLU [Suspect]
     Route: 048
     Dates: start: 20070307, end: 20070307
  2. ANTOBRON [Concomitant]
     Route: 048
     Dates: start: 20070307, end: 20070307
  3. NIFLAN [Concomitant]
     Route: 048
     Dates: start: 20070307, end: 20070307
  4. EBASTEL [Concomitant]
     Route: 048
     Dates: start: 20070307, end: 20070307

REACTIONS (2)
  - ABNORMAL BEHAVIOUR [None]
  - LOSS OF CONSCIOUSNESS [None]
